FAERS Safety Report 9570459 (Version 2)
Quarter: 2013Q4

REPORT INFORMATION
  Report Type: Spontaneous
  Country: IE (occurrence: IE)
  Receive Date: 20131001
  Receipt Date: 20131028
  Transmission Date: 20140711
  Serious: Yes (Other)
  Sender: FDA-Public Use
  Company Number: IE-ROCHE-1283103

PATIENT
  Age: 60 Year
  Sex: Female
  Weight: 84.2 kg

DRUGS (8)
  1. HERCEPTIN [Suspect]
     Indication: BREAST CANCER
     Route: 042
     Dates: start: 20070419
  2. HERCEPTIN [Suspect]
     Route: 042
     Dates: start: 20070419
  3. BEVACIZUMAB [Suspect]
     Indication: BREAST CANCER
     Route: 065
  4. PACLITAXEL [Suspect]
     Indication: BREAST CANCER
     Route: 065
  5. PACLITAXEL [Suspect]
     Route: 065
  6. CARBOPLATIN [Suspect]
     Indication: BREAST CANCER
     Route: 065
  7. ZOLEDRONIC ACID [Suspect]
     Indication: BREAST CANCER
     Route: 065
  8. ASPIRIN [Concomitant]
     Route: 048

REACTIONS (2)
  - B-cell lymphoma [Unknown]
  - Osteonecrosis of jaw [Unknown]
